FAERS Safety Report 6403358-7 (Version None)
Quarter: 2009Q4

REPORT INFORMATION
  Report Type: 
  Country: None (occurrence: None)
  Receive Date: 20091016
  Receipt Date: 20091008
  Transmission Date: 20100525
  Serious: Yes (Hospitalization)
  Sender: FDA-Public Use
  Company Number: DK-ASTRAZENECA-2009SE06135

PATIENT
  Sex: Male
  Weight: 80 kg

DRUGS (3)
  1. XYLOCAINE [Suspect]
     Route: 066
     Dates: start: 20090331, end: 20090705
  2. RANID [Suspect]
     Indication: HYPERTENSION
     Route: 048
     Dates: start: 20090317, end: 20090706
  3. ZARATOR [Concomitant]
     Route: 048

REACTIONS (2)
  - FACE OEDEMA [None]
  - URTICARIA [None]
